FAERS Safety Report 8607134-6 (Version None)
Quarter: 2012Q3

REPORT INFORMATION
  Report Type: 
  Country: None (occurrence: None)
  Receive Date: 20120821
  Receipt Date: 20120813
  Transmission Date: 20120928
  Serious: No
  Sender: FDA-Public Use
  Company Number: US-BIOGENIDEC-2012BI027248

PATIENT
  Sex: Female

DRUGS (1)
  1. TYSABRI [Suspect]
     Indication: MULTIPLE SCLEROSIS
     Route: 042
     Dates: start: 20120130, end: 20120730

REACTIONS (4)
  - BALANCE DISORDER [None]
  - UPPER LIMB FRACTURE [None]
  - FALL [None]
  - WRIST FRACTURE [None]
